FAERS Safety Report 6026076-6 (Version None)
Quarter: 2008Q4

REPORT INFORMATION
  Report Type: 
  Country: None (occurrence: None)
  Receive Date: 20081230
  Receipt Date: 20081219
  Transmission Date: 20090506
  Serious: Yes (Hospitalization, Other)
  Sender: FDA-Public Use
  Company Number: 55489

PATIENT
  Age: 49 Year
  Sex: Female

DRUGS (1)
  1. PACLITAXEL [Suspect]
     Indication: OVARIAN CANCER

REACTIONS (6)
  - JOINT RANGE OF MOTION DECREASED [None]
  - MUSCULOSKELETAL PAIN [None]
  - NORMOCHROMIC NORMOCYTIC ANAEMIA [None]
  - PLEURAL EFFUSION [None]
  - PLEURITIC PAIN [None]
  - SYSTEMIC LUPUS ERYTHEMATOSUS [None]
